FAERS Safety Report 9525168 (Version 1)
Quarter: 2013Q3

REPORT INFORMATION
  Report Type: Spontaneous
  Country: US (occurrence: US)
  Receive Date: 20130916
  Receipt Date: 20130916
  Transmission Date: 20140515
  Serious: No
  Sender: FDA-Public Use
  Company Number: US-PFIZER INC-2013262909

PATIENT
  Age: 67 Year
  Sex: Male

DRUGS (9)
  1. SUTENT [Suspect]
     Indication: RENAL CANCER
     Dosage: 50 MG, UNK
     Dates: start: 20130827
  2. ALLOPURINOL [Concomitant]
     Dosage: UNK
  3. DULCOLAX [Concomitant]
     Dosage: UNK
  4. LASIX [Concomitant]
     Dosage: UNK
  5. LEVEMIR [Concomitant]
     Dosage: UNK
  6. METHADONE HYDROCHLORIDE [Concomitant]
     Dosage: UNK
  7. NOVOLOG MIX 70/30 [Concomitant]
     Dosage: UNK
  8. PRILOSEC [Concomitant]
     Dosage: UNK
  9. SENNA [Concomitant]
     Dosage: UNK

REACTIONS (1)
  - Stomatitis [Unknown]
